FAERS Safety Report 8190714-2 (Version None)
Quarter: 2012Q1

REPORT INFORMATION
  Report Type: 
  Country: None (occurrence: None)
  Receive Date: 20120307
  Receipt Date: 20120209
  Transmission Date: 20120608
  Serious: Yes (Hospitalization, Other)
  Sender: FDA-Public Use
  Company Number: US-ROCHE-788271

PATIENT
  Sex: Male
  Weight: 79.45 kg

DRUGS (3)
  1. ACCUTANE [Suspect]
     Indication: ACNE CYSTIC
     Route: 065
     Dates: start: 20020503, end: 20020725
  2. ACCUTANE [Suspect]
     Route: 065
  3. ACCUTANE [Suspect]
     Route: 065
     Dates: start: 20020801, end: 20021101

REACTIONS (11)
  - DEPRESSION [None]
  - GUN SHOT WOUND [None]
  - CHEST PAIN [None]
  - COUGH [None]
  - POST-TRAUMATIC STRESS DISORDER [None]
  - LYMPHADENITIS [None]
  - ANXIETY [None]
  - INFLAMMATORY BOWEL DISEASE [None]
  - CROHN'S DISEASE [None]
  - MELANOCYTIC NAEVUS [None]
  - NASOPHARYNGITIS [None]
